FAERS Safety Report 6757935-4 (Version None)
Quarter: 2010Q2

REPORT INFORMATION
  Report Type: 
  Country: None (occurrence: None)
  Receive Date: 20100607
  Receipt Date: 20100528
  Transmission Date: 20101027
  Serious: Yes (Disabling, Other)
  Sender: FDA-Public Use
  Company Number: JP-ASTRAZENECA-2010SE14552

PATIENT
  Age: 67 Year
  Sex: Female
  Weight: 86 kg

DRUGS (7)
  1. AMIAS [Suspect]
     Indication: HYPERTENSION
     Route: 048
     Dates: start: 20060123, end: 20100101
  2. PERINDOPRIL [Suspect]
     Indication: HYPERTENSION
     Route: 065
     Dates: start: 20050718, end: 20100101
  3. EZETROL [Suspect]
     Indication: CARDIOVASCULAR EVENT PROPHYLAXIS
     Route: 048
     Dates: start: 20080131, end: 20090901
  4. URSODIOL [Concomitant]
     Indication: BILIARY CIRRHOSIS PRIMARY
     Route: 048
     Dates: start: 20080320, end: 20090720
  5. ASPIRIN [Concomitant]
     Indication: CARDIOVASCULAR EVENT PROPHYLAXIS
     Route: 048
     Dates: start: 20051028, end: 20090901
  6. LEVOTHYROXINE SODIUM [Concomitant]
     Indication: HYPOTHYROIDISM
     Route: 048
     Dates: start: 20050411
  7. BENDROFLUMETHIAZIDE [Concomitant]
     Indication: HYPERTENSION
     Route: 048
     Dates: start: 20050411

REACTIONS (12)
  - AGEUSIA [None]
  - ANOSMIA [None]
  - BULBAR PALSY [None]
  - CHEILITIS [None]
  - DRY EYE [None]
  - DYSPHAGIA [None]
  - EYE PRURITUS [None]
  - GLOSSODYNIA [None]
  - LIP DISORDER [None]
  - LIP SWELLING [None]
  - SPEECH DISORDER [None]
  - SWOLLEN TONGUE [None]
